FAERS Safety Report 23769893 (Version 1)
Quarter: 2024Q2

REPORT INFORMATION
  Report Type: Spontaneous
  Country: US (occurrence: US)
  Receive Date: 20240422
  Receipt Date: 20240422
  Transmission Date: 20240716
  Serious: Yes (Hospitalization, Other)
  Sender: FDA-Public Use
  Company Number: US-BRISTOL-MYERS SQUIBB COMPANY-2024-061870

PATIENT
  Age: 76 Year
  Sex: Male
  Weight: 89.81 kg

DRUGS (1)
  1. POMALYST [Suspect]
     Active Substance: POMALIDOMIDE
     Indication: Plasma cell myeloma
     Dosage: FREQUENCY: 3 WEEKS ON 1 WEEK OFF.
     Route: 048

REACTIONS (2)
  - Pneumonia [Recovering/Resolving]
  - Thrombosis [Recovering/Resolving]
